FAERS Safety Report 23227634 (Version 3)
Quarter: 2023Q4

REPORT INFORMATION
  Report Type: Spontaneous
  Country: GR (occurrence: GR)
  Receive Date: 20231124
  Receipt Date: 20231208
  Transmission Date: 20240110
  Serious: No
  Sender: FDA-Public Use
  Company Number: GR-PFIZER INC-PV202300183214

PATIENT
  Age: 84 Year
  Sex: Female

DRUGS (1)
  1. DAPTOMYCIN [Suspect]
     Active Substance: DAPTOMYCIN
     Indication: Staphylococcal infection
     Dosage: 10 MG/KG

REACTIONS (3)
  - Pathogen resistance [Unknown]
  - Staphylococcal infection [Recovered/Resolved]
  - Product use in unapproved indication [Unknown]
